FAERS Safety Report 8325107-8 (Version None)
Quarter: 2012Q2

REPORT INFORMATION
  Report Type: 
  Country: None (occurrence: None)
  Receive Date: 20120427
  Receipt Date: 20120417
  Transmission Date: 20120825
  Serious: Yes (Other)
  Sender: FDA-Public Use
  Company Number: 2012000087

PATIENT
  Age: 70 Year
  Sex: Male

DRUGS (3)
  1. ACEON [Suspect]
     Indication: CARDIAC FAILURE
     Dosage: 4MG, QD, ORAL
     Route: 048
     Dates: start: 20120411, end: 20120412
  2. DIGOXIN [Concomitant]
  3. HANP (CARPERITIDE) [Concomitant]

REACTIONS (1)
  - SHOCK [None]
